FAERS Safety Report 18739113 (Version 1)
Quarter: 2021Q1

REPORT INFORMATION
  Report Type: Spontaneous
  Country: US (occurrence: US)
  Receive Date: 20210114
  Receipt Date: 20210114
  Transmission Date: 20210419
  Serious: No
  Sender: FDA-Public Use
  Company Number: US-ALLERGAN-2040782US

PATIENT
  Age: 63 Year
  Sex: Female

DRUGS (8)
  1. UBRELVY [Suspect]
     Active Substance: UBROGEPANT
     Dosage: 100 MG (ONLY USED ONCE)
     Route: 048
     Dates: start: 20201019
  2. TROKENDI XR [Concomitant]
     Active Substance: TOPIRAMATE
     Indication: MIGRAINE
     Dosage: 200 MG, QD
     Route: 048
  3. MAGNESIUM CITRATE. [Concomitant]
     Active Substance: MAGNESIUM CITRATE
     Indication: MIGRAINE
  4. AIMOVIG [Concomitant]
     Active Substance: ERENUMAB-AOOE
     Dosage: 140 MG ONCE  MONTHLY
  5. NEXIUM [Concomitant]
     Active Substance: ESOMEPRAZOLE MAGNESIUM
     Indication: GASTROOESOPHAGEAL REFLUX DISEASE
     Dosage: 40 MG, QD
     Route: 048
  6. MAGNESIUM CITRATE. [Concomitant]
     Active Substance: MAGNESIUM CITRATE
     Indication: TINNITUS
     Dosage: 250 MG
     Route: 048
  7. UBRELVY [Suspect]
     Active Substance: UBROGEPANT
     Indication: MIGRAINE
     Dosage: 100 MG, SINGLE
     Route: 048
     Dates: start: 20201214, end: 20201214
  8. FIORINAL WITH CODEINE [Concomitant]
     Active Substance: ASPIRIN\BUTALBITAL\CAFFEINE\CODEINE PHOSPHATE
     Indication: MIGRAINE
     Dosage: UNK, PRN
     Route: 048

REACTIONS (3)
  - Migraine [Unknown]
  - Vulvovaginal mycotic infection [Recovering/Resolving]
  - Vulvovaginal mycotic infection [Recovered/Resolved]

NARRATIVE: CASE EVENT DATE: 20201020
